FAERS Safety Report 5263601-7 (Version None)
Quarter: 2007Q1

REPORT INFORMATION
  Report Type: 
  Country: None (occurrence: None)
  Receive Date: 20070313
  Receipt Date: 20070301
  Transmission Date: 20070707
  Serious: Yes (Disabling)
  Sender: FDA-Public Use
  Company Number: JP-ROCHE-476624

PATIENT
  Age: 72 Year
  Sex: Female
  Weight: 48 kg

DRUGS (18)
  1. CELLCEPT [Suspect]
     Route: 048
     Dates: start: 20060722, end: 20070104
  2. PREDONINE [Concomitant]
     Dosage: DOSE REPORTED AS 20-25 MG.
     Route: 048
     Dates: start: 20061025, end: 20070104
  3. SOL-MELCORT [Concomitant]
     Route: 041
     Dates: start: 20060920, end: 20060922
  4. RINDERON [Concomitant]
     Route: 048
     Dates: start: 20060722, end: 20061024
  5. ENDOXAN [Concomitant]
     Dosage: GIVEN ON 06 OCTOBER 2006 AND 20 NOVEMBER 2006.
     Route: 041
     Dates: start: 20061006, end: 20061120
  6. BONALON [Concomitant]
     Route: 048
     Dates: start: 20060722, end: 20061214
  7. OMEPRAL [Concomitant]
     Route: 048
     Dates: start: 20060722, end: 20070104
  8. ALFAROL [Concomitant]
     Route: 048
     Dates: start: 20060722, end: 20061214
  9. MINOCYCLINE HCL [Concomitant]
     Dosage: FORM: ORAL FORMULATION (NOT OTHERWISE SPECIFIED).
     Route: 048
     Dates: start: 20060722, end: 20061214
  10. NICOTINAMIDE [Concomitant]
     Route: 048
     Dates: start: 20060722, end: 20061214
  11. NOVORAPID [Concomitant]
     Dosage: DOSE REPORTED AS 30-34 UT.
     Route: 058
     Dates: start: 20060722, end: 20061214
  12. PLETAL [Concomitant]
     Route: 048
     Dates: start: 20060803, end: 20061031
  13. ADONA [Concomitant]
     Route: 048
     Dates: start: 20060803, end: 20061214
  14. WARFARIN SODIUM [Concomitant]
     Dosage: DOSE REPORTED AS 3-5 MG.
     Route: 048
     Dates: start: 20060803, end: 20060812
  15. ASPIRIN [Concomitant]
     Route: 048
     Dates: start: 20060929, end: 20061214
  16. FLUMARIN [Concomitant]
     Route: 041
     Dates: start: 20061225, end: 20061229
  17. FLUCONAZOLE [Concomitant]
     Route: 041
     Dates: start: 20061225, end: 20070108
  18. LECTISOL [Concomitant]
     Indication: PEMPHIGOID

REACTIONS (2)
  - ANAEMIA [None]
  - CEREBRAL INFARCTION [None]
